FAERS Safety Report 5508376-9 (Version None)
Quarter: 2007Q4

REPORT INFORMATION
  Report Type: 
  Country: None (occurrence: None)
  Receive Date: 20071101
  Receipt Date: 20071105
  Transmission Date: 20080405
  Serious: Yes (Other)
  Sender: FDA-Public Use
  Company Number: US-RB-008152-07

PATIENT
  Sex: Female
  Weight: 86.8 kg

DRUGS (3)
  1. SUBUTEX [Suspect]
     Route: 060
     Dates: start: 20070926
  2. SUBOXONE [Suspect]
     Route: 060
     Dates: start: 20070601, end: 20070925
  3. CELEXA [Concomitant]
     Indication: DEPRESSION
     Route: 048

REACTIONS (3)
  - ABORTION SPONTANEOUS [None]
  - DRUG EXPOSURE DURING PREGNANCY [None]
  - VAGINAL HAEMORRHAGE [None]
